FAERS Safety Report 10686125 (Version 2)
Quarter: 2014Q4

REPORT INFORMATION
  Report Type: Report from Study
  Country: US (occurrence: US)
  Receive Date: 20141231
  Receipt Date: 20141231
  Transmission Date: 20150529
  Serious: Yes (Life-Threatening)
  Sender: FDA-Public Use
  Company Number: US-ASTRAZENECA-2012SE85709

PATIENT
  Age: 47 Year
  Sex: Female

DRUGS (4)
  1. SEROQUEL XR [Suspect]
     Active Substance: QUETIAPINE FUMARATE
     Route: 048
  2. SEROQUEL XR [Suspect]
     Active Substance: QUETIAPINE FUMARATE
     Route: 048
  3. NEXIUM [Suspect]
     Active Substance: ESOMEPRAZOLE MAGNESIUM
     Route: 048
  4. NEXIUM [Suspect]
     Active Substance: ESOMEPRAZOLE MAGNESIUM
     Route: 048

REACTIONS (9)
  - Panic disorder [Unknown]
  - Insomnia [Unknown]
  - Intentional product misuse [Unknown]
  - Cardiac arrest [Unknown]
  - Drug dose omission [Unknown]
  - Nervousness [Unknown]
  - Stress [Unknown]
  - Adverse event [Unknown]
  - Mobility decreased [Unknown]
